FAERS Safety Report 4887557-1 (Version None)
Quarter: 2006Q1

REPORT INFORMATION
  Report Type: 
  Country: None (occurrence: None)
  Receive Date: 20060118
  Receipt Date: 20060110
  Transmission Date: 20060701
  Serious: Yes (Other)
  Sender: FDA-Public Use
  Company Number: 868#4#2006-00001

PATIENT
  Age: 67 Year
  Sex: Male

DRUGS (8)
  1. COLYTE [Suspect]
     Indication: BARIUM ENEMA
     Dosage: 41, LONCE, ORAL
     Route: 048
     Dates: start: 20060102, end: 20060102
  2. CLOPIDOGREL [Concomitant]
  3. ATORVASTATIN CALCIUM [Concomitant]
  4. HYDROCHLOROTHIAZIDE [Concomitant]
  5. RAMIPRIL [Concomitant]
  6. ATENOLOL [Concomitant]
  7. NIFEDIPINE [Concomitant]
  8. FOLIC ACID [Concomitant]

REACTIONS (1)
  - GRAND MAL CONVULSION [None]
